FAERS Safety Report 5566766-2 (Version None)
Quarter: 2007Q4

REPORT INFORMATION
  Report Type: 
  Country: None (occurrence: None)
  Receive Date: 20071219
  Receipt Date: 20071213
  Transmission Date: 20080405
  Serious: Yes (Other)
  Sender: FDA-Public Use
  Company Number: A0676136A

PATIENT
  Age: 42 Year
  Sex: Female
  Weight: 61.4 kg

DRUGS (7)
  1. WELLBUTRIN [Suspect]
     Route: 048
     Dates: start: 20041019
  2. WELLBUTRIN XL [Suspect]
     Route: 048
     Dates: start: 20061001
  3. UNKNOWN MEDICATION [Suspect]
  4. KEPPRA [Concomitant]
  5. MENEST [Concomitant]
  6. ALBUTEROL [Concomitant]
  7. IBUPROFEN [Concomitant]

REACTIONS (1)
  - CONVULSION [None]
